FAERS Safety Report 5921748-3 (Version None)
Quarter: 2008Q4

REPORT INFORMATION
  Report Type: 
  Country: None (occurrence: None)
  Receive Date: 20081016
  Receipt Date: 20081016
  Transmission Date: 20090506
  Serious: Yes (Life-Threatening, Hospitalization)
  Sender: FDA-Public Use
  Company Number: None

PATIENT
  Age: 30 Year
  Sex: Female
  Weight: 95.2554 kg

DRUGS (1)
  1. ZOLPIDEM [Suspect]
     Indication: INSOMNIA
     Dosage: 10MG OCCASIONAL PO
     Route: 048
     Dates: start: 20080615, end: 20081014

REACTIONS (4)
  - AMNESIA [None]
  - OVERDOSE [None]
  - SOMNAMBULISM [None]
  - SOMNOLENCE [None]
